FAERS Safety Report 7103609 (Version 2)
Quarter: 2018Q3

REPORT INFORMATION
  Report Type: Spontaneous
  Country: JP (occurrence: JP)
  Receive Date: 20090902
  Receipt Date: 20180930
  Transmission Date: 20181010
  Serious: Yes (Hospitalization)
  Sender: FDA-Public Use
  Company Number: PHHY2009JP35291

PATIENT
  Sex: Male
  Weight: 2.56 kg

DRUGS (3)
  1. GLIVEC [Suspect]
     Active Substance: IMATINIB MESYLATE
     Dosage: MATERNAL DOSE: 200 MG, QD
     Route: 064
     Dates: start: 20070615, end: 20070727
  2. GLIVEC [Suspect]
     Active Substance: IMATINIB MESYLATE
     Dosage: MATERNAL DOSE: 400 MG, QD
     Route: 064
     Dates: start: 20070728
  3. GLIVEC [Suspect]
     Active Substance: IMATINIB MESYLATE
     Indication: FOETAL EXPOSURE DURING PREGNANCY
     Dosage: MATERNAL DOSE: 400 MG/DAY
     Route: 064
     Dates: start: 20020618, end: 20061104

REACTIONS (4)
  - Exposure during pregnancy [Unknown]
  - Abortion threatened [Recovered/Resolved]
  - Premature baby [Unknown]
  - Induced labour [Unknown]

NARRATIVE: CASE EVENT DATE: 20070416
